FAERS Safety Report 15235463 (Version 4)
Quarter: 2023Q2

REPORT INFORMATION
  Report Type: Spontaneous
  Country: GB (occurrence: GB)
  Receive Date: 20180803
  Receipt Date: 20230607
  Transmission Date: 20230722
  Serious: Yes (Other)
  Sender: FDA-Public Use
  Company Number: GB-TEVA-2018-GB-933202

PATIENT
  Age: 75 Year
  Sex: Male

DRUGS (2)
  1. METFORMIN [Suspect]
     Active Substance: METFORMIN HYDROCHLORIDE
     Indication: Product used for unknown indication
     Route: 065
  2. CORTICOSTEROID NOS [Concomitant]
     Active Substance: CORTICOSTEROID NOS
     Indication: Product used for unknown indication

REACTIONS (11)
  - Blindness unilateral [Unknown]
  - Cavernous sinus thrombosis [Unknown]
  - Fungal infection [Unknown]
  - Mucormycosis [Unknown]
  - Diabetic ketoacidosis [Unknown]
  - Ophthalmoplegia [Unknown]
  - Skin necrosis [Unknown]
  - Headache [Unknown]
  - Eye swelling [Unknown]
  - Eye pain [Unknown]
  - Conjunctival oedema [Unknown]
